FAERS Safety Report 5934998-7 (Version None)
Quarter: 2008Q4

REPORT INFORMATION
  Report Type: 
  Country: None (occurrence: None)
  Receive Date: 20081029
  Receipt Date: 20081029
  Transmission Date: 20090506
  Serious: Yes (Life-Threatening)
  Sender: FDA-Public Use
  Company Number: None

PATIENT
  Age: 76 Year
  Sex: Female
  Weight: 84.369 kg

DRUGS (1)
  1. RAMIPRIL [Suspect]
     Indication: HYPERTENSION
     Dosage: 10MG BID PO
     Route: 048
     Dates: start: 20080314

REACTIONS (3)
  - HYPERSENSITIVITY [None]
  - LIP SWELLING [None]
  - PRURITUS [None]
